FAERS Safety Report 5458603-1 (Version None)
Quarter: 2007Q3

REPORT INFORMATION
  Report Type: 
  Country: None (occurrence: None)
  Receive Date: 20070919
  Receipt Date: 20070412
  Transmission Date: 20080115
  Serious: No
  Sender: FDA-Public Use
  Company Number: US-ASTRAZENECA-2007UW07242

PATIENT
  Age: 27 Year
  Sex: Female

DRUGS (3)
  1. SEROQUEL [Suspect]
     Route: 048
  2. TOPAMAX [Concomitant]
  3. HYDROXYZINE [Concomitant]

REACTIONS (1)
  - ANTICHOLINERGIC SYNDROME [None]
